FAERS Safety Report 15826788 (Version 1)
Quarter: 2019Q1

REPORT INFORMATION
  Report Type: Spontaneous
  Country: US (occurrence: US)
  Receive Date: 20190115
  Receipt Date: 20190115
  Transmission Date: 20190417
  Serious: No
  Sender: FDA-Public Use
  Company Number: US-RISING PHARMACEUTICALS, INC.-2018RIS00456

PATIENT
  Age: 74 Year
  Sex: Female
  Weight: 49.89 kg

DRUGS (16)
  1. ASPIRIN. [Concomitant]
     Active Substance: ASPIRIN
  2. CITALOPRAM [Concomitant]
     Active Substance: CITALOPRAM HYDROBROMIDE
  3. VITAMIN B12 [Concomitant]
     Active Substance: CYANOCOBALAMIN
  4. LORTAB [Concomitant]
     Active Substance: ACETAMINOPHEN\HYDROCODONE BITARTRATE
  5. POTASSIUM CHLORIDE. [Concomitant]
     Active Substance: POTASSIUM CHLORIDE
  6. VITAMIN D [Concomitant]
     Active Substance: CHOLECALCIFEROL
  7. COQ 10 [Concomitant]
     Active Substance: UBIDECARENONE
  8. LOMOTIL [Concomitant]
     Active Substance: ATROPINE SULFATE\DIPHENOXYLATE HYDROCHLORIDE
  9. HYDROCHLOROTHIAZIDE. [Concomitant]
     Active Substance: HYDROCHLOROTHIAZIDE
  10. LORAZEPAM. [Concomitant]
     Active Substance: LORAZEPAM
     Dosage: UNK, AS NEEDED
  11. RED YEAST RICE [Concomitant]
     Active Substance: DIETARY SUPPLEMENT
  12. BUDESONIDE. [Suspect]
     Active Substance: BUDESONIDE
     Indication: COLITIS MICROSCOPIC
     Dosage: 9 MG, 1X/DAY
     Route: 048
     Dates: start: 20180521, end: 20180720
  13. AMLODIPINE [Concomitant]
     Active Substance: AMLODIPINE BESYLATE
  14. CELEXA [Concomitant]
     Active Substance: CITALOPRAM HYDROBROMIDE
     Dosage: UNK, OCCASIONAL
  15. PRILOSEC [Concomitant]
     Active Substance: OMEPRAZOLE MAGNESIUM
  16. ATENOLOL. [Concomitant]
     Active Substance: ATENOLOL

REACTIONS (13)
  - Oral pain [Unknown]
  - Rash [Recovering/Resolving]
  - Urticaria [Recovering/Resolving]
  - Lip swelling [Unknown]
  - Pain in jaw [Recovering/Resolving]
  - Swollen tongue [Recovering/Resolving]
  - Eye swelling [Unknown]
  - Fatigue [Unknown]
  - Muscle fatigue [Not Recovered/Not Resolved]
  - Off label use [Recovered/Resolved]
  - Swelling face [Unknown]
  - Glossodynia [Recovering/Resolving]
  - Dyspepsia [Recovering/Resolving]

NARRATIVE: CASE EVENT DATE: 20180521
